FAERS Safety Report 7685751-8 (Version None)
Quarter: 2011Q3

REPORT INFORMATION
  Report Type: 
  Country: None (occurrence: None)
  Receive Date: 20110815
  Receipt Date: 20110815
  Transmission Date: 20111222
  Serious: Yes (Other)
  Sender: FDA-Public Use
  Company Number: None

PATIENT
  Sex: Female

DRUGS (1)
  1. OMNIPAQUE 350 [Suspect]

REACTIONS (5)
  - DYSPNOEA [None]
  - TREMOR [None]
  - FEELING COLD [None]
  - MUSCULOSKELETAL STIFFNESS [None]
  - CHEST DISCOMFORT [None]
